FAERS Safety Report 8544692-4 (Version None)
Quarter: 2012Q3

REPORT INFORMATION
  Report Type: 
  Country: None (occurrence: None)
  Receive Date: 20120727
  Receipt Date: 20120716
  Transmission Date: 20120928
  Serious: Yes (Death)
  Sender: FDA-Public Use
  Company Number: FR-BRISTOL-MYERS SQUIBB COMPANY-16778888

PATIENT
  Age: 73 Year
  Sex: Male

DRUGS (1)
  1. ORENCIA [Suspect]
     Dates: start: 20090711

REACTIONS (2)
  - RENAL FAILURE CHRONIC [None]
  - PULMONARY SEPSIS [None]
